FAERS Safety Report 8486151-3 (Version None)
Quarter: 2012Q3

REPORT INFORMATION
  Report Type: 
  Country: None (occurrence: None)
  Receive Date: 20120703
  Receipt Date: 20120702
  Transmission Date: 20120928
  Serious: Yes (Hospitalization)
  Sender: FDA-Public Use
  Company Number: US-GILEAD-2012-0057085

PATIENT
  Sex: Female

DRUGS (2)
  1. LETAIRIS [Suspect]
     Indication: PULMONARY HYPERTENSION
     Dosage: 5 MG, UNK
     Route: 048
     Dates: start: 20120606
  2. LETAIRIS [Suspect]
     Indication: COR PULMONALE

REACTIONS (3)
  - GASTROINTESTINAL PAIN [None]
  - ABASIA [None]
  - GASTROINTESTINAL DISORDER [None]
